FAERS Safety Report 7531327-2 (Version None)
Quarter: 2011Q2

REPORT INFORMATION
  Report Type: 
  Country: None (occurrence: None)
  Receive Date: 20110606
  Receipt Date: 20110606
  Transmission Date: 20111010
  Serious: Yes (Death)
  Sender: FDA-Public Use
  Company Number: None

PATIENT
  Age: 33 Year
  Sex: Male
  Weight: 68.9467 kg

DRUGS (1)
  1. QUETIAPINE [Suspect]
     Indication: POSTPARTUM STRESS DISORDER
     Dosage: 100MG 1 AM, 3 PM 9/2010; 200MG 1 PM

REACTIONS (3)
  - ARRHYTHMIA [None]
  - ARTERIOSCLEROSIS CORONARY ARTERY [None]
  - TOXICITY TO VARIOUS AGENTS [None]
